FAERS Safety Report 7679416-6 (Version None)
Quarter: 2011Q3

REPORT INFORMATION
  Report Type: 
  Country: None (occurrence: None)
  Receive Date: 20110812
  Receipt Date: 20110801
  Transmission Date: 20111222
  Serious: Yes (Life-Threatening, Hospitalization)
  Sender: FDA-Public Use
  Company Number: FR-UCBSA-024277

PATIENT
  Sex: Female

DRUGS (32)
  1. LOXAPINE HCL [Suspect]
     Indication: PSYCHOTIC DISORDER
     Route: 042
     Dates: start: 20100913, end: 20101001
  2. LOXAPINE HCL [Suspect]
     Indication: AGITATION
     Route: 042
     Dates: start: 20100913, end: 20101001
  3. ERYTHROMYCINE [Concomitant]
     Dates: start: 20100907, end: 20100911
  4. ISUPREL [Concomitant]
     Dates: start: 20100902, end: 20100903
  5. CLONAZEPAM [Concomitant]
     Dates: start: 20100902, end: 20100903
  6. ORBENIN CAP [Concomitant]
     Dates: start: 20100902, end: 20100918
  7. ACETAMINOPHEN [Concomitant]
     Dates: start: 20100903, end: 20100909
  8. EFFEXOR [Concomitant]
     Indication: DEPRESSION
     Dosage: ORAL/IV
     Dates: start: 20080101
  9. LEXOMIL [Concomitant]
     Indication: AGITATION
     Dates: start: 20100929
  10. ACTRAPID [Concomitant]
     Dates: start: 20100903, end: 20100919
  11. LASILEX [Concomitant]
     Dates: start: 20100905, end: 20100915
  12. LOVENOX [Concomitant]
     Dates: start: 20100905, end: 20101002
  13. ETOMIDATE [Concomitant]
     Dates: start: 20100902, end: 20100918
  14. SUFENTA PRESERVATIVE FREE [Concomitant]
     Dates: start: 20100902, end: 20100918
  15. CELOCURINE [Concomitant]
     Dates: start: 20100902, end: 20100918
  16. DIPRIVAN [Concomitant]
     Dates: start: 20100902, end: 20100911
  17. NORCURON [Concomitant]
     Dates: start: 20100910, end: 20100913
  18. MORPHINE [Concomitant]
     Dates: start: 20100918, end: 20100922
  19. BRICANYL [Concomitant]
     Dates: start: 20100913, end: 20100914
  20. GENTAMICIN [Concomitant]
     Dates: start: 20100902, end: 20100918
  21. KEPPRA [Suspect]
     Indication: EPILEPSY
     Route: 042
     Dates: start: 20100902, end: 20101001
  22. SILVER SULFADIAZINE [Suspect]
     Indication: INFECTION PROPHYLAXIS
     Route: 061
     Dates: start: 20100904, end: 20100910
  23. GENTALLINE (GENTAMICINE) [Concomitant]
     Indication: PNEUMONIA
     Route: 042
     Dates: start: 20100914, end: 20100917
  24. DAFFALGAN [Concomitant]
     Dates: start: 20100916, end: 20101002
  25. MIDAZOLAM HCL [Concomitant]
     Dates: start: 20100910, end: 20100913
  26. SOLU-MEDROL [Concomitant]
     Dates: start: 20100910, end: 20100913
  27. FOLDINE [Concomitant]
     Dates: start: 20100918, end: 20100929
  28. NEXIUM [Concomitant]
     Dates: start: 20100907, end: 20100910
  29. LEVOTHYROXINE SODIUM [Concomitant]
     Dates: start: 20091107, end: 20101012
  30. EFFEXOR [Concomitant]
     Dates: start: 20100903, end: 20101001
  31. SECTRAL [Concomitant]
     Dates: start: 20100915, end: 20101003
  32. FERROUS SULFATE TAB [Concomitant]
     Dates: start: 20100918, end: 20100929

REACTIONS (2)
  - SEPTIC SHOCK [None]
  - TOXIC EPIDERMAL NECROLYSIS [None]
